FAERS Safety Report 8555588-6 (Version None)
Quarter: 2012Q3

REPORT INFORMATION
  Report Type: 
  Country: None (occurrence: None)
  Receive Date: 20120731
  Receipt Date: 20110720
  Transmission Date: 20120928
  Serious: No
  Sender: FDA-Public Use
  Company Number: US-ASTRAZENECA-2008UW26968

PATIENT
  Age: 40 Year
  Sex: Female
  Weight: 88 kg

DRUGS (18)
  1. SEROQUEL [Suspect]
     Dosage: 100 TO 300 MG
     Route: 048
     Dates: start: 20020613
  2. PAXIL CR [Concomitant]
     Dates: start: 20020815
  3. SEROQUEL [Suspect]
     Indication: DEPRESSION
     Dosage: 200 MG TO 1100 MG
     Route: 048
     Dates: start: 20020613
  4. REMERON [Concomitant]
     Dosage: 15 MG AND 25 MG
     Dates: start: 20070101
  5. TRAZODONE HCL [Concomitant]
     Dosage: 100 MG AND 150 MG
     Dates: start: 20080101
  6. PROMETHAZINE [Concomitant]
     Dates: start: 20020607
  7. ZOFRAN [Concomitant]
     Route: 048
     Dates: start: 20070215
  8. REMERON [Concomitant]
     Route: 048
     Dates: start: 20070215
  9. DIAZEPAM [Concomitant]
     Dates: start: 20020617
  10. CLONAZEPAM [Concomitant]
     Dates: start: 20020617
  11. NEURONTIN [Concomitant]
     Dates: start: 20020617
  12. CELEXA [Concomitant]
     Dates: start: 20020618
  13. SEROQUEL [Suspect]
     Dosage: 100 TO 300 MG
     Route: 048
     Dates: start: 20020613
  14. OXYBUTYNIN [Concomitant]
     Dates: start: 20020813
  15. OMEPRAZOLE [Concomitant]
     Route: 048
     Dates: start: 20070215
  16. SEROQUEL [Suspect]
     Indication: BIPOLAR DISORDER
     Dosage: 200 MG TO 1100 MG
     Route: 048
     Dates: start: 20020613
  17. ABILIFY [Concomitant]
  18. DICYCLOMINE [Concomitant]
     Dates: start: 20020822

REACTIONS (3)
  - ASTHMA [None]
  - OBESITY [None]
  - TYPE 2 DIABETES MELLITUS [None]
